FAERS Safety Report 5935873-4 (Version None)
Quarter: 2008Q4

REPORT INFORMATION
  Report Type: 
  Country: None (occurrence: None)
  Receive Date: 20081030
  Receipt Date: 20081024
  Transmission Date: 20090506
  Serious: Yes (Hospitalization)
  Sender: FDA-Public Use
  Company Number: NL-BRISTOL-MYERS SQUIBB COMPANY-14383798

PATIENT

DRUGS (1)
  1. ORENCIA [Suspect]

REACTIONS (1)
  - CEREBROVASCULAR ACCIDENT [None]
